FAERS Safety Report 18739258 (Version 1)
Quarter: 2021Q1

REPORT INFORMATION
  Report Type: Other
  Country: CA (occurrence: CA)
  Receive Date: 20210114
  Receipt Date: 20210114
  Transmission Date: 20210419
  Serious: Yes (Hospitalization, Other)
  Sender: FDA-Public Use
  Company Number: CA-APOTEX-2021AP001068

PATIENT
  Age: 70 Year
  Sex: Male
  Weight: 90 kg

DRUGS (2)
  1. L?THYROXINE [LEVOTHYROXINE] [Concomitant]
     Active Substance: LEVOTHYROXINE
     Indication: PRODUCT USED FOR UNKNOWN INDICATION
     Dosage: UNK
     Route: 065
  2. APO?OLANZAPINE ODT [Suspect]
     Active Substance: OLANZAPINE
     Indication: SCHIZOPHRENIA
     Dosage: 20 MILLIGRAM, QD
     Route: 048

REACTIONS (10)
  - Hepatic cirrhosis [Unknown]
  - Pyrexia [Unknown]
  - Urinary tract infection [Unknown]
  - Blood lactic acid increased [Unknown]
  - Fall [Unknown]
  - Blood creatinine increased [Unknown]
  - Liver function test increased [Unknown]
  - Urinary retention [Unknown]
  - Asthenia [Unknown]
  - Jaundice [Unknown]
